FAERS Safety Report 13989803 (Version 1)
Quarter: 2017Q3

REPORT INFORMATION
  Report Type: Spontaneous
  Country: US (occurrence: US)
  Receive Date: 20170920
  Receipt Date: 20170920
  Transmission Date: 20171128
  Serious: No
  Sender: FDA-Public Use
  Company Number: US-TEVA-767419USA

PATIENT
  Sex: Female
  Weight: 52.21 kg

DRUGS (1)
  1. CYCLOBENZAPRINE. [Suspect]
     Active Substance: CYCLOBENZAPRINE
     Indication: MYALGIA
     Dosage: 5 MG INCREASED TO 10 MG EVERY 8 HRS
     Route: 065

REACTIONS (1)
  - Drug ineffective [Unknown]
